FAERS Safety Report 24044900 (Version 2)
Quarter: 2024Q3

REPORT INFORMATION
  Report Type: Spontaneous
  Country: CN (occurrence: CN)
  Receive Date: 20240703
  Receipt Date: 20240712
  Transmission Date: 20241017
  Serious: Yes (Hospitalization, Other)
  Sender: ACCORD
  Company Number: CN-Accord-432526

PATIENT
  Age: 31 Year
  Sex: Male

DRUGS (8)
  1. TACROLIMUS [Suspect]
     Active Substance: TACROLIMUS
     Indication: Immunosuppressant drug therapy
     Dosage: HIGH DOSE
     Dates: start: 202305, end: 20230509
  2. METHYLPREDNISOLONE [Concomitant]
     Active Substance: METHYLPREDNISOLONE
     Indication: Immunosuppressant drug therapy
     Dates: start: 202305
  3. MYCOPHENOLATE MOFETIL [Concomitant]
     Active Substance: MYCOPHENOLATE MOFETIL
     Indication: Immunosuppressant drug therapy
     Dates: start: 202305
  4. TIGECYCLINE [Concomitant]
     Active Substance: TIGECYCLINE
     Indication: Enterococcal infection
     Dosage: INITIAL DOSE
     Dates: start: 20230505, end: 202305
  5. LINEZOLID [Concomitant]
     Active Substance: LINEZOLID
     Indication: Enterococcal infection
     Dates: start: 20230505
  6. TIGECYCLINE [Concomitant]
     Active Substance: TIGECYCLINE
     Indication: Acinetobacter infection
     Route: 042
     Dates: start: 202305, end: 20230509
  7. LINEZOLID [Concomitant]
     Active Substance: LINEZOLID
     Indication: Acinetobacter infection
  8. TACROLIMUS [Suspect]
     Active Substance: TACROLIMUS
     Indication: Immunosuppressant drug therapy
     Dosage: WAS REAPPLIED AFTER COVID-19 BECAME NEGATIVE
     Dates: start: 202305

REACTIONS (5)
  - Pancreatitis acute [Recovered/Resolved]
  - COVID-19 [Recovered/Resolved]
  - Immunosuppressant drug level increased [Recovered/Resolved]
  - Pancreatitis necrotising [Recovered/Resolved]
  - Haematoma [Recovered/Resolved]

NARRATIVE: CASE EVENT DATE: 20230101
